FAERS Safety Report 10196772 (Version 3)
Quarter: 2014Q2

REPORT INFORMATION
  Report Type: Spontaneous
  Country: DE (occurrence: DE)
  Receive Date: 20140527
  Receipt Date: 20140630
  Transmission Date: 20141212
  Serious: Yes (Hospitalization)
  Sender: FDA-Public Use
  Company Number: DE-BAYER-2014-074883

PATIENT
  Age: 44 Year
  Sex: Female
  Weight: 67.98 kg

DRUGS (2)
  1. CIPROBAY [Suspect]
     Indication: NEPHRITIS
     Dosage: UNK
  2. CIPROBAY [Suspect]
     Indication: URINARY TRACT INFECTION

REACTIONS (27)
  - Schizophrenia [Recovering/Resolving]
  - Abnormal behaviour [Recovering/Resolving]
  - Delusion [Recovering/Resolving]
  - Inappropriate affect [Recovering/Resolving]
  - Crying [Recovering/Resolving]
  - Insomnia [Recovering/Resolving]
  - Energy increased [Recovering/Resolving]
  - Coma [Recovering/Resolving]
  - Decreased interest [Recovering/Resolving]
  - Libido decreased [Recovering/Resolving]
  - Anhedonia [Recovering/Resolving]
  - Weight increased [Recovering/Resolving]
  - Mania [Recovering/Resolving]
  - Memory impairment [Recovering/Resolving]
  - Logorrhoea [Recovering/Resolving]
  - Mood swings [Recovering/Resolving]
  - Thinking abnormal [Recovering/Resolving]
  - Delusion [Recovering/Resolving]
  - Hallucination, auditory [Recovering/Resolving]
  - Thought insertion [Recovering/Resolving]
  - Suicidal ideation [Recovering/Resolving]
  - Aggression [Recovering/Resolving]
  - Irritability [Recovering/Resolving]
  - Anosognosia [Recovering/Resolving]
  - Compulsive shopping [Recovering/Resolving]
  - Partner stress [Recovering/Resolving]
  - Dissociation [Recovering/Resolving]
